FAERS Safety Report 18382901 (Version 1)
Quarter: 2020Q4

REPORT INFORMATION
  Report Type: Spontaneous
  Country: US (occurrence: US)
  Receive Date: 20201014
  Receipt Date: 20201014
  Transmission Date: 20210114
  Serious: Yes (Other)
  Sender: FDA-Public Use
  Company Number: None

PATIENT
  Age: 69 Year
  Sex: Male
  Weight: 94.5 kg

DRUGS (2)
  1. SYNTHROID [Concomitant]
     Active Substance: LEVOTHYROXINE SODIUM
  2. ERYTHROMYCIN OPHTHALMIC OINTMENT [Suspect]
     Active Substance: ERYTHROMYCIN
     Indication: CONJUNCTIVITIS
     Route: 047
     Dates: start: 20201009, end: 20201010

REACTIONS (4)
  - Vision blurred [None]
  - Product dispensing error [None]
  - Visual impairment [None]
  - Eye irritation [None]

NARRATIVE: CASE EVENT DATE: 20201014
